FAERS Safety Report 6089476-4 (Version None)
Quarter: 2009Q1

REPORT INFORMATION
  Report Type: 
  Country: None (occurrence: None)
  Receive Date: 20090219
  Receipt Date: 20090203
  Transmission Date: 20090719
  Serious: Yes (Hospitalization)
  Sender: FDA-Public Use
  Company Number: 2008JP005163

PATIENT
  Age: 75 Year
  Sex: Female
  Weight: 48.5 kg

DRUGS (10)
  1. TACROLIMUS [Suspect]
     Indication: LUPUS NEPHRITIS
     Dosage: 0.5 MG, ORAL : 1 MG, ORAL : 0.5 MG, ORAL
     Route: 048
     Dates: start: 20080905, end: 20080911
  2. TACROLIMUS [Suspect]
     Indication: LUPUS NEPHRITIS
     Dosage: 0.5 MG, ORAL : 1 MG, ORAL : 0.5 MG, ORAL
     Route: 048
     Dates: start: 20080912, end: 20081016
  3. TACROLIMUS [Suspect]
     Indication: LUPUS NEPHRITIS
     Dosage: 0.5 MG, ORAL : 1 MG, ORAL : 0.5 MG, ORAL
     Route: 048
     Dates: start: 20081017, end: 20081024
  4. PREDNISOLONE [Concomitant]
  5. EPADEL (ETHYL ICOSAPENTATE) [Concomitant]
  6. OMEPRAL (OMEPRAZOLE SODIUM) [Concomitant]
  7. DOXAZOSIN MESYLATE [Concomitant]
  8. NATRIX (INDAPAMIDE) [Concomitant]
  9. FOSAMAX [Concomitant]
  10. DIAMOX (ACETAZOLAMIDE SODIUM) [Concomitant]

REACTIONS (2)
  - BLOOD AMYLASE INCREASED [None]
  - LIPASE INCREASED [None]
